FAERS Safety Report 10588230 (Version 2)
Quarter: 2015Q3

REPORT INFORMATION
  Report Type: Other
  Country: DE (occurrence: DE)
  Receive Date: 20141117
  Receipt Date: 20150724
  Transmission Date: 20151125
  Serious: Yes (Other)
  Sender: FDA-Public Use
  Company Number: DE-NOVEN-14DE010862

PATIENT
  Sex: Male
  Weight: 3.77 kg

DRUGS (4)
  1. PAROXETINE [Suspect]
     Active Substance: PAROXETINE\PAROXETINE HYDROCHLORIDE
     Indication: DEPRESSION
     Dosage: 40 MG DAILY, UNTIL GESTATIONAL WEEK 30
     Route: 064
     Dates: start: 20130718, end: 20140413
  2. PAROXETINE [Suspect]
     Active Substance: PAROXETINE\PAROXETINE HYDROCHLORIDE
     Dosage: 30 MG DAILY, AFTER GESTATIONAL WEEK 35 (40 MG DAILY, MAYBE SOMETIMES JUST 20 MG DAILY)
     Route: 064
     Dates: start: 20130718, end: 20140413
  3. TAVOR [Concomitant]
     Active Substance: LORAZEPAM
     Indication: PRODUCT USED FOR UNKNOWN INDICATION
     Dosage: UNK
     Route: 064
     Dates: start: 201310
  4. PRENATAL VITAMINS                  /07499601/ [Concomitant]
     Active Substance: VITAMINS
     Indication: PRODUCT USED FOR UNKNOWN INDICATION

REACTIONS (2)
  - Foetal exposure during pregnancy [Unknown]
  - Myoclonus [Unknown]

NARRATIVE: CASE EVENT DATE: 2014
